FAERS Safety Report 21789249 (Version 2)
Quarter: 2023Q1

REPORT INFORMATION
  Report Type: Spontaneous
  Country: CA (occurrence: CA)
  Receive Date: 20221228
  Receipt Date: 20230227
  Transmission Date: 20230417
  Serious: Yes (Other)
  Sender: FDA-Public Use
  Company Number: CA-PFIZER INC-202201300383

PATIENT
  Age: 29 Year
  Sex: Female

DRUGS (1)
  1. XELJANZ [Suspect]
     Active Substance: TOFACITINIB CITRATE
     Indication: Colitis ulcerative
     Dosage: 10 MG, 2X/DAY
     Route: 048
     Dates: start: 20221119, end: 202302

REACTIONS (5)
  - Migraine [Not Recovered/Not Resolved]
  - Off label use [Unknown]
  - Headache [Unknown]
  - Urine analysis abnormal [Unknown]
  - Fatigue [Unknown]
